FAERS Safety Report 22280034 (Version 1)
Quarter: 2023Q2

REPORT INFORMATION
  Report Type: Spontaneous
  Country: US (occurrence: None)
  Receive Date: 20230501
  Receipt Date: 20230501
  Transmission Date: 20230721
  Serious: Yes (Hospitalization)
  Sender: FDA-Public Use
  Company Number: None

PATIENT
  Age: 18 Year
  Sex: Female
  Weight: 50.8 kg

DRUGS (1)
  1. LILETTA [Suspect]
     Active Substance: LEVONORGESTREL

REACTIONS (7)
  - Abdominal pain [None]
  - Ovarian cyst [None]
  - Heavy menstrual bleeding [None]
  - Mental disorder [None]
  - General physical health deterioration [None]
  - Sexual dysfunction [None]
  - Oligomenorrhoea [None]

NARRATIVE: CASE EVENT DATE: 20221001
